FAERS Safety Report 6525834-9 (Version None)
Quarter: 2010Q1

REPORT INFORMATION
  Report Type: 
  Country: None (occurrence: None)
  Receive Date: 20100104
  Receipt Date: 20091224
  Transmission Date: 20100710
  Serious: No
  Sender: FDA-Public Use
  Company Number: B0615345A

PATIENT
  Sex: Female

DRUGS (2)
  1. FLUTIDE DISKUS [Suspect]
     Indication: ASTHMA
     Route: 055
  2. GASTER [Concomitant]
     Route: 065

REACTIONS (1)
  - STOMATITIS [None]
